FAERS Safety Report 8889313 (Version 3)
Quarter: 2013Q1

REPORT INFORMATION
  Report Type: Report from Study
  Country: RO (occurrence: RO)
  Receive Date: 20121106
  Receipt Date: 20130222
  Transmission Date: 20140127
  Serious: Yes (Death)
  Sender: FDA-Public Use
  Company Number: RO-SANOFI-AVENTIS-2012SA080696

PATIENT
  Age: 82 Year
  Sex: Male
  Weight: 95 kg

DRUGS (7)
  1. CABAZITAXEL [Suspect]
     Indication: PROSTATE CANCER METASTATIC
     Dates: start: 20121015, end: 20121015
  2. PREDNISONE [Suspect]
     Indication: PROSTATE CANCER METASTATIC
     Dates: start: 20121015, end: 20121022
  3. ARCOXIA [Concomitant]
     Route: 048
     Dates: start: 20120606
  4. NITROPECTOR [Concomitant]
     Indication: PROPHYLAXIS
     Route: 048
     Dates: start: 20080401
  5. PREDUCTAL [Concomitant]
     Route: 048
     Dates: start: 20080401
  6. ASPENTER [Concomitant]
     Route: 048
     Dates: start: 20080401
  7. FILGRASTIM [Concomitant]
     Indication: NEUTROPENIA
     Dates: start: 20121022

REACTIONS (1)
  - Neutropenia [Fatal]
